FAERS Safety Report 5020939-6 (Version None)
Quarter: 2006Q2

REPORT INFORMATION
  Report Type: 
  Country: None (occurrence: None)
  Receive Date: 20060608
  Receipt Date: 20060530
  Transmission Date: 20061013
  Serious: Yes (Disabling)
  Sender: FDA-Public Use
  Company Number: 2006AC01036

PATIENT
  Sex: Male

DRUGS (5)
  1. CRESTOR [Suspect]
     Indication: HYPERCHOLESTEROLAEMIA
     Route: 048
     Dates: start: 20060215
  2. NEORAL [Interacting]
     Dates: end: 20060314
  3. NEORAL [Interacting]
     Dosage: DOSE INCREASED
     Dates: start: 20060315
  4. ENALAPRIL [Concomitant]
  5. AMARYL [Concomitant]

REACTIONS (4)
  - BLOOD GLUCOSE INCREASED [None]
  - COORDINATION ABNORMAL [None]
  - DRUG INTERACTION [None]
  - LOW DENSITY LIPOPROTEIN DECREASED [None]
